FAERS Safety Report 7617063-2 (Version None)
Quarter: 2011Q3

REPORT INFORMATION
  Report Type: 
  Country: None (occurrence: None)
  Receive Date: 20110718
  Receipt Date: 20110705
  Transmission Date: 20111222
  Serious: Yes (Hospitalization, Other)
  Sender: FDA-Public Use
  Company Number: US-ELI_LILLY_AND_COMPANY-US201106003431

PATIENT
  Sex: Female

DRUGS (19)
  1. FORTEO [Suspect]
     Indication: OSTEOPOROSIS
     Dosage: 20 UG, QD
     Route: 058
     Dates: start: 20101208
  2. FOLIC ACID [Concomitant]
     Dosage: 800 UG, QD
     Dates: start: 20081030
  3. STOOL SOFTENER [Concomitant]
  4. CITRACAL + D [Concomitant]
     Dosage: UNK, QD
     Dates: start: 20081031
  5. MIRTAZAPINE [Concomitant]
     Dosage: 30 MG, EACH EVENING
     Dates: start: 20081119
  6. LOVAZA [Concomitant]
  7. FISH OIL [Concomitant]
     Dosage: 1000 MG, BID
     Dates: start: 20081031
  8. REMERON [Concomitant]
     Dosage: 30 MG, EACH EVENING
     Route: 048
     Dates: start: 20081030
  9. FERROUS SULFATE TAB [Concomitant]
     Dosage: 325 MG, BID
  10. PENTASA [Concomitant]
     Dosage: 250 MG, TID
     Route: 048
     Dates: start: 20081030
  11. METAMUCIL-2 [Concomitant]
  12. COSOPT [Concomitant]
     Dosage: UNK, BID
     Dates: start: 20081031
  13. VITAMIN B-12 [Concomitant]
     Dosage: 250 UG, BID
     Dates: start: 20081030
  14. NORITATE [Concomitant]
     Dosage: UNK, EACH MORNING
     Dates: start: 20090911
  15. NORVASC [Concomitant]
     Dosage: 5 MG, EACH MORNING
     Dates: start: 20081119
  16. VITAMIN B6 [Concomitant]
     Dosage: 50 MG, QD
     Dates: start: 20090520
  17. MULTI-VITAMIN [Concomitant]
     Dosage: UNK, QD
  18. LUCENTIS [Concomitant]
     Dosage: UNK, MONTHLY (1/M)
  19. INSULIN [Concomitant]
     Dosage: UNK
     Dates: start: 20101208

REACTIONS (1)
  - BREAST CANCER [None]
